FAERS Safety Report 22870450 (Version 2)
Quarter: 2023Q4

REPORT INFORMATION
  Report Type: Report from Study
  Country: AR (occurrence: AR)
  Receive Date: 20230827
  Receipt Date: 20231024
  Transmission Date: 20240110
  Serious: Yes (Death, Other)
  Sender: FDA-Public Use
  Company Number: AR-002147023-NVSC2023AR185014

PATIENT
  Age: 48 Year
  Sex: Female

DRUGS (1)
  1. KISQALI [Suspect]
     Active Substance: RIBOCICLIB
     Indication: Breast cancer metastatic
     Dosage: UNK
     Route: 065
     Dates: start: 20230731

REACTIONS (3)
  - Death [Fatal]
  - Condition aggravated [Unknown]
  - Spinal pain [Unknown]

NARRATIVE: CASE EVENT DATE: 20230801
